FAERS Safety Report 22212340 (Version 2)
Quarter: 2023Q2

REPORT INFORMATION
  Report Type: Spontaneous
  Country: US (occurrence: None)
  Receive Date: 20230414
  Receipt Date: 20230503
  Transmission Date: 20230722
  Serious: Yes (Other)
  Sender: FDA-Public Use
  Company Number: US-ROCHE-3326754

PATIENT
  Age: 62 Year
  Sex: Male
  Weight: 118.04 kg

DRUGS (4)
  1. ESBRIET [Suspect]
     Active Substance: PIRFENIDONE
     Indication: Idiopathic pulmonary fibrosis
     Route: 048
     Dates: start: 20230403, end: 20230404
  2. OXYGEN [Concomitant]
     Active Substance: OXYGEN
     Dosage: CONTINUOUS
     Route: 055
  3. ALBUTEROL [Concomitant]
     Active Substance: ALBUTEROL
     Indication: Gout
     Route: 048
  4. XANAX [Concomitant]
     Active Substance: ALPRAZOLAM
     Dosage: 1/2 TABLET AS NEEDED
     Route: 048

REACTIONS (11)
  - Nausea [Recovering/Resolving]
  - Sleep terror [Recovering/Resolving]
  - Anxiety [Not Recovered/Not Resolved]
  - Tremor [Recovering/Resolving]
  - Feeling hot [Recovering/Resolving]
  - Dysphagia [Not Recovered/Not Resolved]
  - Pharyngeal swelling [Not Recovered/Not Resolved]
  - Aspiration [Recovered/Resolved]
  - Disturbance in attention [Recovering/Resolving]
  - Throat tightness [Recovering/Resolving]
  - Dizziness exertional [Recovered/Resolved]

NARRATIVE: CASE EVENT DATE: 20230404
